FAERS Safety Report 15367035 (Version 1)
Quarter: 2018Q3

REPORT INFORMATION
  Report Type: Spontaneous
  Country: US (occurrence: US)
  Receive Date: 20180910
  Receipt Date: 20180910
  Transmission Date: 20181010
  Serious: No
  Sender: FDA-Public Use
  Company Number: US-UPSHER-SMITH LABORATORIES, LLC-2017USL00274

PATIENT
  Sex: Female
  Weight: 97.51 kg

DRUGS (14)
  1. CRESTOR [Concomitant]
     Active Substance: ROSUVASTATIN CALCIUM
     Dosage: 5 MG, 1X/DAY AT BEDTIME
  2. EFFEXOR XR [Concomitant]
     Active Substance: VENLAFAXINE HYDROCHLORIDE
     Dosage: 75 MG, 1X/DAY
  3. METHYLPHENIDATE. [Concomitant]
     Active Substance: METHYLPHENIDATE
     Dosage: 10 MG, 1X/DAY IN THE AFTERNOON
  4. VITAMIN E [Concomitant]
     Active Substance: .ALPHA.-TOCOPHEROL
  5. CLARITIN [Concomitant]
     Active Substance: LORATADINE
  6. VITAMIN D [Concomitant]
     Active Substance: CHOLECALCIFEROL
     Dosage: 5000 IU, 1X/DAY
  7. OXYBUTYNIN CHLORIDE. [Suspect]
     Active Substance: OXYBUTYNIN CHLORIDE
     Indication: INCONTINENCE
     Dosage: 5 MG, 4X/DAY
     Route: 048
     Dates: start: 2017, end: 20171021
  8. BACLOFEN. [Concomitant]
     Active Substance: BACLOFEN
     Dosage: UNK, 3X/DAY
  9. LISINOPRIL. [Concomitant]
     Active Substance: LISINOPRIL
  10. TYSABRI [Concomitant]
     Active Substance: NATALIZUMAB
     Dosage: UNK, EVERY 28 DAYS
  11. MULTI VITAMIN [Concomitant]
     Active Substance: VITAMINS
  12. STOOL SOFTENER (UNSPECIFED) [Concomitant]
  13. METHYLPHENIDATE. [Concomitant]
     Active Substance: METHYLPHENIDATE
     Dosage: 20 MG, 1X/DAY IN THE AM
  14. NAPROXEN. [Concomitant]
     Active Substance: NAPROXEN
     Dosage: 500 MG, AS NEEDED

REACTIONS (2)
  - Product substitution issue [Recovered/Resolved]
  - Drug ineffective [Recovered/Resolved]

NARRATIVE: CASE EVENT DATE: 2017
